FAERS Safety Report 5792320-3 (Version None)
Quarter: 2008Q2

REPORT INFORMATION
  Report Type: 
  Country: None (occurrence: None)
  Receive Date: 20080626
  Receipt Date: 20080616
  Transmission Date: 20081010
  Serious: Yes (Other)
  Sender: FDA-Public Use
  Company Number: US-ABBOTT-08P-163-0458559-00

PATIENT
  Sex: Female

DRUGS (5)
  1. DEPAKOTE [Suspect]
     Indication: CONVULSION
     Route: 065
     Dates: start: 20031117
  2. FENTANYL CITRATE [Interacting]
     Indication: ARTHRALGIA
     Route: 002
     Dates: start: 20030716, end: 20031030
  3. FENTANYL CITRATE [Interacting]
     Indication: BACK PAIN
     Route: 002
     Dates: start: 20031030, end: 20031201
  4. VICODIN [Concomitant]
     Indication: DRUG USE FOR UNKNOWN INDICATION
  5. BACLOFEN [Concomitant]
     Indication: DRUG USE FOR UNKNOWN INDICATION

REACTIONS (14)
  - ACCIDENT [None]
  - ALCOHOL INDUCED PERSISTING DEMENTIA [None]
  - ARRHYTHMIA [None]
  - BIPOLAR DISORDER [None]
  - CEREBRAL ATROPHY [None]
  - CEREBROVASCULAR ACCIDENT [None]
  - CONVULSION [None]
  - DEMENTIA [None]
  - DENTAL CARIES [None]
  - DRUG INEFFECTIVE FOR UNAPPROVED INDICATION [None]
  - DRUG INTERACTION [None]
  - FEELING ABNORMAL [None]
  - SCHIZOPHRENIA [None]
  - TRAUMATIC BRAIN INJURY [None]
